FAERS Safety Report 20871018 (Version 1)
Quarter: 2022Q2

REPORT INFORMATION
  Report Type: Spontaneous
  Country: US (occurrence: None)
  Receive Date: 20220524
  Receipt Date: 20220524
  Transmission Date: 20220721
  Serious: No
  Sender: FDA-Public Use
  Company Number: None

PATIENT
  Age: 39 Year
  Sex: Female
  Weight: 117.93 kg

DRUGS (1)
  1. STELARA [Suspect]
     Active Substance: USTEKINUMAB
     Indication: Psoriasis
     Dosage: INJECT 90 MG SUBCUTANEOUSLY AT WEEK 0 AND  WEEK 4 AS DIRECTED.     ?
     Route: 058
     Dates: start: 202112

REACTIONS (2)
  - Pneumonia [None]
  - Sepsis [None]
